FAERS Safety Report 20995064 (Version 2)
Quarter: 2022Q3

REPORT INFORMATION
  Report Type: Spontaneous
  Country: CA (occurrence: CA)
  Receive Date: 20220622
  Receipt Date: 20220803
  Transmission Date: 20221027
  Serious: No
  Sender: FDA-Public Use
  Company Number: CA-Kaleo, Inc.-2022KL000037

PATIENT
  Age: 11 Year
  Sex: Male

DRUGS (1)
  1. EPINEPHRINE [Suspect]
     Active Substance: EPINEPHRINE

REACTIONS (2)
  - No device malfunction [Not Recovered/Not Resolved]
  - No device malfunction [Not Recovered/Not Resolved]
